FAERS Safety Report 4320160-0 (Version None)
Quarter: 2004Q1

REPORT INFORMATION
  Report Type: 
  Country: None (occurrence: None)
  Receive Date: 20040317
  Receipt Date: 20040305
  Transmission Date: 20041129
  Serious: Yes (Death, Life-Threatening, Other)
  Sender: FDA-Public Use
  Company Number: 2003116639

PATIENT
  Age: 76 Year
  Sex: Male
  Weight: 74 kg

DRUGS (6)
  1. VFEND [Suspect]
     Indication: ASPERGILLOSIS
     Dosage: 800 MG (BID), ORAL
     Route: 048
     Dates: start: 20030924, end: 20030927
  2. OPIUM ALKALOIDS AND DERIVATIVES [Suspect]
     Indication: ILL-DEFINED DISORDER
  3. SOTALOL HCL [Concomitant]
  4. GLICLAZIDE (GLICLAZIDE) [Concomitant]
  5. PIP/TAZO (PIPERACILLIN SODIUM, TAZOBACTAM SODIUM) [Concomitant]
  6. GENTAMICIN [Concomitant]

REACTIONS (5)
  - ACUTE MYELOID LEUKAEMIA [None]
  - ASPARTATE AMINOTRANSFERASE INCREASED [None]
  - DRUG INTERACTION POTENTIATION [None]
  - HALLUCINATION [None]
  - LIVER FUNCTION TEST ABNORMAL [None]
